FAERS Safety Report 7482855-X (Version None)
Quarter: 2011Q2

REPORT INFORMATION
  Report Type: 
  Country: None (occurrence: None)
  Receive Date: 20110516
  Receipt Date: 20110510
  Transmission Date: 20111010
  Serious: Yes (Other)
  Sender: FDA-Public Use
  Company Number: BR-PFIZER INC-2011099940

PATIENT
  Age: 38 Year
  Sex: Female
  Weight: 95 kg

DRUGS (1)
  1. LYRICA [Suspect]
     Indication: SPINAL DISORDER
     Dosage: 75 MG, DAILY
     Route: 048
     Dates: start: 20101001

REACTIONS (5)
  - ANGINA PECTORIS [None]
  - CHEST PAIN [None]
  - MONOPARESIS [None]
  - PAIN [None]
  - DRUG INEFFECTIVE [None]
